FAERS Safety Report 7346767-4 (Version None)
Quarter: 2011Q1

REPORT INFORMATION
  Report Type: 
  Country: None (occurrence: None)
  Receive Date: 20110311
  Receipt Date: 20110228
  Transmission Date: 20110831
  Serious: Yes (Other)
  Sender: FDA-Public Use
  Company Number: US-JNJFOC-20110301119

PATIENT
  Sex: Female
  Weight: 52.35 kg

DRUGS (5)
  1. BUDESONIDE [Concomitant]
  2. REMICADE [Suspect]
     Indication: COLITIS ULCERATIVE
     Route: 042
  3. LIALDA [Concomitant]
  4. HEMOCYTE C [Concomitant]
  5. REMICADE [Suspect]
     Route: 042

REACTIONS (2)
  - PREMATURE LABOUR [None]
  - DRUG EXPOSURE DURING PREGNANCY [None]
